FAERS Safety Report 8999330 (Version 1)
Quarter: 2013Q1

REPORT INFORMATION
  Report Type: Spontaneous
  Country: FR (occurrence: FR)
  Receive Date: 20130103
  Receipt Date: 20130103
  Transmission Date: 20140127
  Serious: Yes (Hospitalization)
  Sender: FDA-Public Use
  Company Number: FR-JNJFOC-20121213499

PATIENT
  Age: 68 Year
  Sex: Male

DRUGS (8)
  1. REMICADE [Suspect]
     Indication: COLITIS ULCERATIVE
     Route: 042
     Dates: start: 20121029
  2. REMICADE [Suspect]
     Indication: COLITIS ULCERATIVE
     Route: 042
     Dates: start: 20121106
  3. CORTANCYL [Concomitant]
     Route: 048
  4. PENTASA [Concomitant]
     Indication: COLITIS
     Route: 048
     Dates: start: 2010
  5. IMUREL [Concomitant]
     Route: 048
  6. POLARAMINE (DEXCHLORPHENIRAMINE) [Concomitant]
     Indication: PREMEDICATION
     Route: 065
  7. HYDROCORTISONE [Concomitant]
     Indication: PREMEDICATION
     Route: 065
  8. FLECAINIDE [Concomitant]
     Indication: PREMEDICATION
     Route: 065

REACTIONS (2)
  - Ventricular tachycardia [Recovered/Resolved]
  - Infusion related reaction [Recovered/Resolved]
